FAERS Safety Report 5479968-0 (Version None)
Quarter: 2007Q4

REPORT INFORMATION
  Report Type: 
  Country: None (occurrence: None)
  Receive Date: 20071008
  Receipt Date: 20070928
  Transmission Date: 20080405
  Serious: Yes (Other)
  Sender: FDA-Public Use
  Company Number: AU-MERCK-0707AUS00237

PATIENT
  Sex: Female

DRUGS (2)
  1. FOSAMAX [Suspect]
     Indication: OSTEOPOROSIS
     Route: 048
  2. FOSAMAX [Suspect]
     Route: 048

REACTIONS (4)
  - FALL [None]
  - MUSCULOSKELETAL PAIN [None]
  - TOOTH FRACTURE [None]
  - UPPER LIMB FRACTURE [None]
